FAERS Safety Report 8985927 (Version 1)
Quarter: 2012Q4

REPORT INFORMATION
  Report Type: 
  Country: US (occurrence: US)
  Receive Date: 20121226
  Receipt Date: 20121226
  Transmission Date: 20130627
  Serious: No
  Sender: FDA-Public Use
  Company Number: US-ABBOTT-12P-163-0903526-00

PATIENT
  Age: 84 None
  Sex: Male
  Weight: 63.56 kg

DRUGS (5)
  1. LUPRON DEPOT 30 MG [Suspect]
     Indication: PROSTATE CANCER
     Dates: start: 2007, end: 2007
  2. LUPRON DEPOT 30 MG [Suspect]
     Dates: start: 20120130
  3. SIMVASTATIN [Concomitant]
     Indication: BLOOD CHOLESTEROL INCREASED
  4. NEXIUM [Concomitant]
     Indication: GASTROOESOPHAGEAL REFLUX DISEASE
  5. CARDURA [Concomitant]
     Indication: HYPERTENSION

REACTIONS (6)
  - Musculoskeletal pain [Recovered/Resolved]
  - Muscle tightness [Recovered/Resolved]
  - Oedema peripheral [Not Recovered/Not Resolved]
  - Muscle tightness [Not Recovered/Not Resolved]
  - Muscular weakness [Not Recovered/Not Resolved]
  - Hypersensitivity [Not Recovered/Not Resolved]
